FAERS Safety Report 24320493 (Version 2)
Quarter: 2025Q1

REPORT INFORMATION
  Report Type: Spontaneous
  Country: US (occurrence: US)
  Receive Date: 20240915
  Receipt Date: 20250127
  Transmission Date: 20250408
  Serious: No
  Sender: SANOFI AVENTIS
  Company Number: US-SA-2024SA264686

PATIENT
  Age: 46 Year
  Sex: Male

DRUGS (1)
  1. DUPIXENT [Suspect]
     Active Substance: DUPILUMAB
     Indication: Asthma
     Dosage: 300 MG, QOW
     Route: 058

REACTIONS (6)
  - Loss of personal independence in daily activities [Unknown]
  - Inflammation [Unknown]
  - Respiratory tract infection viral [Unknown]
  - Asthma [Unknown]
  - Dyspnoea [Unknown]
  - Therapeutic response shortened [Unknown]
